FAERS Safety Report 4453220-4 (Version None)
Quarter: 2004Q3

REPORT INFORMATION
  Report Type: 
  Country: None (occurrence: None)
  Receive Date: 20040901
  Receipt Date: 20040709
  Transmission Date: 20050211
  Serious: Yes (Hospitalization)
  Sender: FDA-Public Use
  Company Number: US083383

PATIENT
  Age: 69 Year
  Sex: Female

DRUGS (2)
  1. ENBREL [Suspect]
     Indication: PSORIATIC ARTHROPATHY
     Dosage: 2 IN 1 WEEKS, SC
     Route: 058
     Dates: start: 20031101, end: 20040527
  2. PREDNISONE [Concomitant]

REACTIONS (2)
  - PNEUMONIA [None]
  - WHITE BLOOD CELL COUNT DECREASED [None]
